FAERS Safety Report 8125708-6 (Version None)
Quarter: 2012Q1

REPORT INFORMATION
  Report Type: 
  Country: None (occurrence: None)
  Receive Date: 20120206
  Receipt Date: 20120126
  Transmission Date: 20120608
  Serious: Yes (Other)
  Sender: FDA-Public Use
  Company Number: 2012SP001406

PATIENT
  Age: 32 Year
  Sex: Male

DRUGS (2)
  1. NUVARING [Suspect]
     Indication: CONTRACEPTION
  2. LANSOPRAZOLE [Concomitant]

REACTIONS (1)
  - PENILE ULCERATION [None]
